FAERS Safety Report 12093302 (Version 1)
Quarter: 2016Q1

REPORT INFORMATION
  Report Type: Spontaneous
  Country: US (occurrence: US)
  Receive Date: 20160219
  Receipt Date: 20160219
  Transmission Date: 20160526
  Serious: No
  Sender: FDA-Public Use
  Company Number: US-DRREDDYS-USA/USA/15/0054989

PATIENT
  Sex: Female
  Weight: 46.6 kg

DRUGS (1)
  1. SUMATRIPTAN INJECTION USP, 6 MG/0.5 ML [Suspect]
     Active Substance: SUMATRIPTAN
     Indication: MIGRAINE
     Dosage: ONE INJECTION IN THE MIDDLE OF THE NIGHT EVERY TWO TO THREE WEEKS
     Route: 065

REACTIONS (2)
  - Product physical issue [Unknown]
  - Drug dose omission [Unknown]
